FAERS Safety Report 8500903-2 (Version None)
Quarter: 2012Q3

REPORT INFORMATION
  Report Type: 
  Country: None (occurrence: None)
  Receive Date: 20120710
  Receipt Date: 20120705
  Transmission Date: 20120928
  Serious: Yes (Other)
  Sender: FDA-Public Use
  Company Number: GB-ROCHE-1085935

PATIENT
  Age: 63 Year

DRUGS (2)
  1. LUCENTIS [Suspect]
     Indication: MACULOPATHY
     Route: 050
  2. VITAMINS (UNK INGREDIENTS) [Concomitant]

REACTIONS (3)
  - EYE PAIN [None]
  - RENAL DISORDER [None]
  - FATIGUE [None]
